FAERS Safety Report 4502534-8 (Version None)
Quarter: 2004Q4

REPORT INFORMATION
  Report Type: 
  Country: None (occurrence: None)
  Receive Date: 20041112
  Receipt Date: 20041105
  Transmission Date: 20050328
  Serious: Yes (Hospitalization)
  Sender: FDA-Public Use
  Company Number: LTI2004A00247

PATIENT
  Age: 55 Year
  Sex: Female

DRUGS (3)
  1. ACTOS [Suspect]
     Indication: DIABETES MELLITUS NON-INSULIN-DEPENDENT
     Dosage: 30 MG (30 MG, 1 IN 1 D) ORAL; 60 MG ORAL
     Route: 048
     Dates: start: 20040101, end: 20040401
  2. ACTOS [Suspect]
     Indication: DIABETES MELLITUS NON-INSULIN-DEPENDENT
     Dosage: 30 MG (30 MG, 1 IN 1 D) ORAL; 60 MG ORAL
     Route: 048
     Dates: start: 20040401, end: 20040501
  3. UNSPECIFIED ANT-DIABETICS TREATMENTS (ANTI-DIABETICS) [Suspect]
     Indication: DIABETES MELLITUS NON-INSULIN-DEPENDENT
     Dates: end: 20040501

REACTIONS (2)
  - CARPAL TUNNEL DECOMPRESSION [None]
  - CYTOLYTIC HEPATITIS [None]
